FAERS Safety Report 16867209 (Version 2)
Quarter: 2020Q4

REPORT INFORMATION
  Report Type: Spontaneous
  Country: AU (occurrence: AU)
  Receive Date: 20190930
  Receipt Date: 20201118
  Transmission Date: 20210113
  Serious: Yes (Hospitalization, Other)
  Sender: FDA-Public Use
  Company Number: AU-MACLEODS PHARMACEUTICALS US LTD-MAC2019023082

PATIENT

DRUGS (4)
  1. ZOPICLONE [Suspect]
     Active Substance: ZOPICLONE
     Indication: PRODUCT USED FOR UNKNOWN INDICATION
     Dosage: 10 TABLETS OF 7.5 MILLIGRAM
     Route: 065
  2. METHOTREXATE. [Suspect]
     Active Substance: METHOTREXATE
     Indication: RHEUMATOID ARTHRITIS
     Dosage: 30 MILLIGRAM, Q.W.
     Route: 048
  3. METHOTREXATE. [Suspect]
     Active Substance: METHOTREXATE
     Dosage: 125 DOSAGE FORM, SINGLE
     Route: 048
  4. TRAMADOL 50 MG [Suspect]
     Active Substance: TRAMADOL
     Indication: PRODUCT USED FOR UNKNOWN INDICATION
     Dosage: 6 DOSAGE FORM, SIX TABLETS OF TRAMADOL SR 50 MG
     Route: 065

REACTIONS (5)
  - Myelosuppression [Recovered/Resolved]
  - Toxicity to various agents [Unknown]
  - Aspiration [Unknown]
  - Gastrointestinal toxicity [Unknown]
  - Intentional overdose [Unknown]
